FAERS Safety Report 4378521-X (Version None)
Quarter: 2004Q2

REPORT INFORMATION
  Report Type: 
  Country: None (occurrence: None)
  Receive Date: 20040609
  Receipt Date: 20040527
  Transmission Date: 20050107
  Serious: Yes (Other)
  Sender: FDA-Public Use
  Company Number: 200412303BCC

PATIENT
  Age: 33 Year
  Sex: Male
  Weight: 88.905 kg

DRUGS (2)
  1. ASPIRIN [Suspect]
     Indication: HANGOVER
     Dosage: 1000 MG, ORAL
     Route: 048
  2. ALEVE [Suspect]
     Dosage: 220 MG, PRN, ORAL
     Route: 048

REACTIONS (5)
  - BLOOD URINE [None]
  - EYELID OEDEMA [None]
  - OEDEMA PERIPHERAL [None]
  - PROTEIN URINE [None]
  - SWELLING FACE [None]
